FAERS Safety Report 12208502 (Version 1)
Quarter: 2016Q1

REPORT INFORMATION
  Report Type: Spontaneous
  Country: US (occurrence: US)
  Receive Date: 20160324
  Receipt Date: 20160324
  Transmission Date: 20160526
  Serious: Yes (Other)
  Sender: FDA-Public Use
  Company Number: US-BAYER-2016-055212

PATIENT
  Age: 28 Year
  Sex: Female

DRUGS (1)
  1. MIRENA [Suspect]
     Active Substance: LEVONORGESTREL
     Indication: CONTRACEPTION
     Dosage: 20 MCG/24HR, CONT
     Route: 015
     Dates: start: 201503, end: 20151221

REACTIONS (9)
  - Skin discolouration [Recovered/Resolved]
  - Hormone level abnormal [Recovered/Resolved]
  - Breast tenderness [Recovered/Resolved]
  - Nipple disorder [Recovered/Resolved]
  - Abortion spontaneous [Recovered/Resolved]
  - Pregnancy with contraceptive device [Recovered/Resolved]
  - Genital haemorrhage [Recovered/Resolved]
  - Acne [Recovered/Resolved]
  - Drug ineffective [None]

NARRATIVE: CASE EVENT DATE: 2015
